FAERS Safety Report 4362485-9 (Version None)
Quarter: 2004Q2

REPORT INFORMATION
  Report Type: 
  Country: None (occurrence: None)
  Receive Date: 20040518
  Receipt Date: 20040503
  Transmission Date: 20050107
  Serious: Yes (Hospitalization)
  Sender: FDA-Public Use
  Company Number: 184612

PATIENT
  Age: 4 Year
  Sex: Female
  Weight: 18 kg

DRUGS (20)
  1. AVONEX ^BIOGEN^ [Suspect]
     Indication: MULTIPLE SCLEROSIS
     Dosage: 0.35 CC BIW IM
     Dates: start: 20011001, end: 20030801
  2. AVONEX ^BIOGEN^ [Suspect]
     Indication: MULTIPLE SCLEROSIS
     Dosage: 0.3 CC BIW IM
     Dates: start: 20030826, end: 20030929
  3. AVONEX ^BIOGEN^ [Suspect]
     Indication: MULTIPLE SCLEROSIS
     Dosage: 0.15 CC BIW IM
     Dates: start: 20031013, end: 20031024
  4. AVONEX ^BIOGEN^ [Suspect]
     Indication: MULTIPLE SCLEROSIS
     Dosage: 7.5 MCG BIW IM
     Dates: start: 20040401
  5. NATALIZUMAB [Concomitant]
  6. LACTULOSE [Concomitant]
  7. MULTI-VITAMINS [Concomitant]
  8. BACLOFEN [Concomitant]
  9. CARBATROL [Concomitant]
  10. SENOKOT [Concomitant]
  11. SEPTRA [Concomitant]
  12. NEURONTIN [Concomitant]
  13. OXYCODONE [Concomitant]
  14. DEPAKOTE [Concomitant]
  15. ZANTAC [Concomitant]
  16. MIRALAX [Concomitant]
  17. TEGRETOL [Concomitant]
  18. DILANTIN [Concomitant]
  19. CALCIUM CARBONATE [Concomitant]
  20. BACTRIM [Concomitant]

REACTIONS (11)
  - ALANINE AMINOTRANSFERASE INCREASED [None]
  - ASPARTATE AMINOTRANSFERASE INCREASED [None]
  - ASTHENIA [None]
  - BLOOD ALKALINE PHOSPHATASE INCREASED [None]
  - BLOOD BILIRUBIN INCREASED [None]
  - MEDICATION ERROR [None]
  - MULTIPLE SCLEROSIS [None]
  - NAUSEA [None]
  - NEUROPATHIC PAIN [None]
  - PAIN IN EXTREMITY [None]
  - VOMITING [None]
